FAERS Safety Report 9819465 (Version 1)
Quarter: 2014Q1

REPORT INFORMATION
  Report Type: Spontaneous
  Country: US (occurrence: US)
  Receive Date: 20140115
  Receipt Date: 20140115
  Transmission Date: 20141002
  Serious: Yes (Other)
  Sender: FDA-Public Use
  Company Number: US-PFIZER INC-2014012410

PATIENT
  Sex: Male
  Weight: 227 kg

DRUGS (5)
  1. CHANTIX [Suspect]
     Indication: SMOKING CESSATION THERAPY
     Dosage: UNK
     Dates: start: 2009, end: 2009
  2. SEROQUEL [Concomitant]
     Indication: DEPRESSION
     Dosage: 300 MG, UNK
  3. PERCOCET [Concomitant]
     Indication: HEADACHE
     Dosage: UNK
  4. XANAX [Concomitant]
     Dosage: 2 MG, UNK
  5. OXYCODONE [Concomitant]
     Dosage: 120 MG, UNK

REACTIONS (3)
  - Chronic obstructive pulmonary disease [Unknown]
  - Gastric disorder [Unknown]
  - Thinking abnormal [Unknown]
